FAERS Safety Report 7420361-9 (Version None)
Quarter: 2011Q2

REPORT INFORMATION
  Report Type: 
  Country: None (occurrence: None)
  Receive Date: 20110418
  Receipt Date: 20091117
  Transmission Date: 20111010
  Serious: No
  Sender: FDA-Public Use
  Company Number: 2009BI038051

PATIENT
  Age: 64 Year
  Sex: Female

DRUGS (1)
  1. TYSABRI [Suspect]
     Indication: MULTIPLE SCLEROSIS
     Route: 042
     Dates: start: 20091019

REACTIONS (11)
  - INFECTION [None]
  - GIARDIASIS [None]
  - WEIGHT DECREASED [None]
  - AGRAPHIA [None]
  - TREMOR [None]
  - MUSCLE SPASTICITY [None]
  - GAIT DISTURBANCE [None]
  - DYSARTHRIA [None]
  - VISUAL IMPAIRMENT [None]
  - BALANCE DISORDER [None]
  - PRURITUS [None]
